FAERS Safety Report 11105982 (Version 1)
Quarter: 2015Q2

REPORT INFORMATION
  Report Type: Spontaneous
  Country: BR (occurrence: BR)
  Receive Date: 20150512
  Receipt Date: 20150512
  Transmission Date: 20150821
  Serious: Yes (Other)
  Sender: FDA-Public Use
  Company Number: BR-SUN PHARMACEUTICAL INDUSTRIES LTD-2015R5-96599

PATIENT
  Sex: Male

DRUGS (5)
  1. PROPIRAMATO [Concomitant]
     Indication: EPILEPSY
     Dosage: UNK
     Route: 065
     Dates: start: 201105
  2. DEPAKOTE [Concomitant]
     Active Substance: DIVALPROEX SODIUM
     Indication: EPILEPSY
     Dosage: UNK
     Route: 065
     Dates: start: 201105
  3. SELZIC TABLETS 300MG [Suspect]
     Active Substance: OXCARBAZEPINE
     Indication: EPILEPSY
     Dosage: UNK
     Route: 065
  4. IBUPROFEN/OXCARBAMAZEPINE [Concomitant]
     Indication: SEIZURE
     Dosage: UNK
     Route: 065
     Dates: start: 201505
  5. NITRAZEPAM [Concomitant]
     Active Substance: NITRAZEPAM
     Indication: EPILEPSY
     Dosage: UNK
     Route: 065
     Dates: start: 201105

REACTIONS (1)
  - Drug ineffective [Unknown]
